FAERS Safety Report 9257755 (Version 2)
Quarter: 2013Q2

REPORT INFORMATION
  Report Type: Spontaneous
  Country: JP (occurrence: JP)
  Receive Date: 20130426
  Receipt Date: 20130506
  Transmission Date: 20140414
  Serious: Yes (Congenital Anomaly)
  Sender: FDA-Public Use
  Company Number: JP-ASTELLAS-2013JP005380

PATIENT
  Age: 0 Year
  Sex: Female
  Weight: 2.54 kg

DRUGS (21)
  1. PROGRAF [Suspect]
     Indication: FOETAL EXPOSURE DURING PREGNANCY
     Dosage: 2 MG, BID
     Route: 064
     Dates: start: 20120922, end: 20120923
  2. PROGRAF [Suspect]
     Dosage: 4 MG, BID
     Route: 064
     Dates: start: 20120924, end: 20120925
  3. PROGRAF [Suspect]
     Dosage: 6 MG, BID
     Route: 064
     Dates: start: 20120926, end: 20121005
  4. PREDONINE                          /00016201/ [Concomitant]
     Indication: FOETAL EXPOSURE DURING PREGNANCY
     Dosage: 15 MG, BID
     Route: 064
     Dates: start: 20120823, end: 20120905
  5. PREDONINE                          /00016201/ [Concomitant]
     Dosage: 22.5 MG, BID
     Route: 064
     Dates: start: 20120906, end: 20120918
  6. PREDONINE                          /00016201/ [Concomitant]
     Dosage: 15 MG, BID
     Route: 064
     Dates: start: 20121004, end: 20121005
  7. PREDONINE                          /00016201/ [Concomitant]
     Indication: FOETAL EXPOSURE DURING PREGNANCY
     Dosage: 40 MG, UNKNOWN/D
     Route: 064
     Dates: start: 20120918, end: 20121003
  8. PREDONEMA [Concomitant]
     Indication: FOETAL EXPOSURE DURING PREGNANCY
     Dosage: 20 MG, BID
     Route: 064
     Dates: end: 20120918
  9. ASACOL [Concomitant]
     Indication: FOETAL EXPOSURE DURING PREGNANCY
     Dosage: 4000 MG, UID/QD
     Route: 064
     Dates: end: 20120919
  10. PENTASA [Concomitant]
     Indication: FOETAL EXPOSURE DURING PREGNANCY
     Dosage: 2000 MG, BID
     Route: 064
     Dates: start: 20120920, end: 20121005
  11. FERROMIA                           /00023516/ [Concomitant]
     Indication: FOETAL EXPOSURE DURING PREGNANCY
     Dosage: 50 MG, BID
     Route: 064
     Dates: end: 20121005
  12. FAMOTIDINE [Concomitant]
     Indication: FOETAL EXPOSURE DURING PREGNANCY
     Dosage: 20 MG, BID
     Route: 064
     Dates: end: 20121005
  13. LAC-B [Concomitant]
     Indication: FOETAL EXPOSURE DURING PREGNANCY
     Dosage: 1 G, TID
     Route: 064
     Dates: end: 20121005
  14. GASCON [Concomitant]
     Indication: FOETAL EXPOSURE DURING PREGNANCY
     Dosage: 40 MG, TID
     Route: 064
     Dates: end: 20121005
  15. ALFAROL [Concomitant]
     Indication: FOETAL EXPOSURE DURING PREGNANCY
     Dosage: 0.5 UG, UID/QD
     Route: 064
     Dates: end: 20120919
  16. ONEALFA [Concomitant]
     Indication: FOETAL EXPOSURE DURING PREGNANCY
     Dosage: 0.5 UG, UID/QD
     Route: 064
     Dates: start: 20120920, end: 20121005
  17. RITODRINE                          /00424202/ [Concomitant]
     Indication: FOETAL EXPOSURE DURING PREGNANCY
     Dosage: 5 MG, PRN
     Route: 064
  18. CIPROXAN                           /00697202/ [Concomitant]
     Indication: FOETAL EXPOSURE DURING PREGNANCY
     Dosage: 100 MG, BID
     Route: 064
     Dates: start: 20120924, end: 20121005
  19. BAKTAR [Concomitant]
     Indication: FOETAL EXPOSURE DURING PREGNANCY
     Dosage: 1 DF, BID
     Route: 064
     Dates: start: 20120924, end: 20121005
  20. OMEPRAZOLE [Concomitant]
     Indication: FOETAL EXPOSURE DURING PREGNANCY
     Dosage: 20 MG, UID/QD
     Route: 064
     Dates: start: 20120928, end: 20121005
  21. KOLANTYL                           /00130401/ [Concomitant]
     Indication: FOETAL EXPOSURE DURING PREGNANCY
     Dosage: 1 G, TID
     Route: 064
     Dates: start: 20120927, end: 20121005

REACTIONS (2)
  - Premature labour [Recovered/Resolved]
  - Low birth weight baby [Recovered/Resolved]
